FAERS Safety Report 7590272-7 (Version None)
Quarter: 2011Q3

REPORT INFORMATION
  Report Type: 
  Country: None (occurrence: None)
  Receive Date: 20110705
  Receipt Date: 20110626
  Transmission Date: 20111222
  Serious: Yes (Death)
  Sender: FDA-Public Use
  Company Number: EG-SANOFI-AVENTIS-2011SA040357

PATIENT
  Age: 49 Year
  Sex: Female

DRUGS (2)
  1. LANTUS [Suspect]
     Dosage: DOSE:15 UNIT(S)
     Route: 058
     Dates: start: 20101201, end: 20110511
  2. INSULIN MIXTARD [Concomitant]
     Dosage: DOSE:60 UNIT(S)
     Route: 058
     Dates: end: 20110511

REACTIONS (1)
  - DEATH [None]
